FAERS Safety Report 25766259 (Version 1)
Quarter: 2025Q3

REPORT INFORMATION
  Report Type: Other
  Country: US (occurrence: US)
  Receive Date: 20250905
  Receipt Date: 20250905
  Transmission Date: 20251021
  Serious: Yes (Death, Hospitalization)
  Sender: ANI
  Company Number: US-ANIPHARMA-030465

PATIENT
  Age: 4 Year
  Sex: Female

DRUGS (4)
  1. TEMOZOLOMIDE [Suspect]
     Active Substance: TEMOZOLOMIDE
     Indication: Pleuropulmonary blastoma
  2. VINCRISTINE [Concomitant]
     Active Substance: VINCRISTINE
     Indication: Pleuropulmonary blastoma
  3. IRINOTECAN [Concomitant]
     Active Substance: IRINOTECAN
     Indication: Pleuropulmonary blastoma
     Route: 048
  4. TRAMETINIB [Concomitant]
     Active Substance: TRAMETINIB
     Indication: Pleuropulmonary blastoma

REACTIONS (1)
  - Drug ineffective [Fatal]
